FAERS Safety Report 13559806 (Version 2)
Quarter: 2017Q2

REPORT INFORMATION
  Report Type: Spontaneous
  Country: US (occurrence: US)
  Receive Date: 20170518
  Receipt Date: 20170628
  Transmission Date: 20170830
  Serious: Yes (Other)
  Sender: FDA-Public Use
  Company Number: US-ASTRAZENECA-2017SE51716

PATIENT
  Age: 44 Year
  Sex: Female
  Weight: 117.9 kg

DRUGS (6)
  1. PREDNISONE. [Concomitant]
     Active Substance: PREDNISONE
     Indication: SKIN IRRITATION
     Dosage: 20.0MG UNKNOWN
     Route: 048
     Dates: start: 20170511
  2. SYMBICORT [Suspect]
     Active Substance: BUDESONIDE\FORMOTEROL FUMARATE DIHYDRATE
     Indication: ASTHMA
     Dosage: 160/4.5 MCG 2 INHALATIONS ONCE A DAY
     Route: 055
  3. BENADRYL [Concomitant]
     Active Substance: DIPHENHYDRAMINE HYDROCHLORIDE
     Indication: MULTIPLE ALLERGIES
     Route: 048
     Dates: start: 2016
  4. SYMBICORT [Suspect]
     Active Substance: BUDESONIDE\FORMOTEROL FUMARATE DIHYDRATE
     Indication: ASTHMA
     Dosage: 160/4.5 MCG 2 INHALATIONS TWO TIMES A DAY
     Route: 055
     Dates: start: 201604
  5. VENTOLIN HFA [Concomitant]
     Active Substance: ALBUTEROL SULFATE
     Indication: INHALATION THERAPY
     Dosage: 2 PUFFS EVERY 4 TO 6 HOURS AS NEEDED
  6. OMEPRAZOLE. [Suspect]
     Active Substance: OMEPRAZOLE
     Indication: GASTROOESOPHAGEAL REFLUX DISEASE
     Route: 048

REACTIONS (11)
  - Asthma [Unknown]
  - Choking [Recovered/Resolved]
  - Asthma [Unknown]
  - Chest discomfort [Unknown]
  - Intentional product misuse [Unknown]
  - Respiratory tract irritation [Unknown]
  - Foreign body aspiration [Recovered/Resolved]
  - Hypersensitivity [Unknown]
  - Off label use [Unknown]
  - Hypertension [Unknown]
  - Device malfunction [Unknown]

NARRATIVE: CASE EVENT DATE: 2016
